FAERS Safety Report 9092111 (Version 1)
Quarter: 2013Q1

REPORT INFORMATION
  Report Type: Spontaneous
  Country: PR (occurrence: PR)
  Receive Date: 20130131
  Receipt Date: 20130131
  Transmission Date: 20140127
  Serious: No
  Sender: FDA-Public Use
  Company Number: PR-ABBOTT-12P-131-0983857-00

PATIENT
  Age: 48 Year
  Sex: Female
  Weight: 88.98 kg

DRUGS (6)
  1. HUMIRA [Suspect]
     Indication: RHEUMATOID ARTHRITIS
     Route: 058
     Dates: end: 20120910
  2. HUMIRA [Suspect]
     Route: 058
     Dates: start: 20121003
  3. ADVAIR [Concomitant]
     Indication: ASTHMA
     Dosage: 100/50- 1 PUMP DAILY; ORAL INHALATION
     Route: 055
     Dates: start: 2010
  4. METHOTREXATE [Concomitant]
     Indication: RHEUMATOID ARTHRITIS
     Route: 048
     Dates: start: 2010
  5. FOLIC ACID [Concomitant]
     Indication: RHEUMATOID ARTHRITIS
     Route: 048
     Dates: start: 201105
  6. SYNTHROID [Concomitant]
     Indication: THYROID DISORDER
     Route: 048
     Dates: start: 2006

REACTIONS (1)
  - Nasopharyngitis [Recovered/Resolved]
